FAERS Safety Report 14901425 (Version 2)
Quarter: 2018Q2

REPORT INFORMATION
  Report Type: Spontaneous
  Country: GB (occurrence: GB)
  Receive Date: 20180516
  Receipt Date: 20180516
  Transmission Date: 20180711
  Serious: Yes (Other)
  Sender: FDA-Public Use
  Company Number: PHHY2018GB008080

PATIENT
  Age: 53 Year
  Sex: Female
  Weight: 135.6 kg

DRUGS (4)
  1. COSENTYX [Suspect]
     Active Substance: SECUKINUMAB
     Indication: PSORIASIS
     Dosage: 300 MG, QW
     Route: 058
  2. METHOTREXATE. [Suspect]
     Active Substance: METHOTREXATE
     Dosage: 10 MG, QW
     Route: 048
  3. METHOTREXATE. [Suspect]
     Active Substance: METHOTREXATE
     Dosage: 2.5 MG, QW
     Route: 048
  4. METHOTREXATE. [Suspect]
     Active Substance: METHOTREXATE
     Indication: PSORIASIS
     Dosage: 5 MG, UNK
     Route: 048
     Dates: start: 201607

REACTIONS (5)
  - Furuncle [Unknown]
  - Beta haemolytic streptococcal infection [Unknown]
  - Staphylococcal infection [Unknown]
  - Viral infection [Unknown]
  - Skin fissures [Unknown]
